FAERS Safety Report 18823368 (Version 12)
Quarter: 2023Q2

REPORT INFORMATION
  Report Type: Report from Study
  Country: CO (occurrence: CO)
  Receive Date: 20210202
  Receipt Date: 20230502
  Transmission Date: 20230721
  Serious: Yes (Other)
  Sender: FDA-Public Use
  Company Number: CO-TAKEDA-2020TUS022387

PATIENT
  Age: 35 Year
  Sex: Female
  Weight: 65 kg

DRUGS (3)
  1. VEDOLIZUMAB [Suspect]
     Active Substance: VEDOLIZUMAB
     Indication: Colitis ulcerative
     Dosage: 300 MILLIGRAM
     Route: 042
     Dates: start: 20200408
  2. VEDOLIZUMAB [Suspect]
     Active Substance: VEDOLIZUMAB
     Dosage: 300 MILLIGRAM
     Route: 042
  3. BUPRENORPHINE [Suspect]
     Active Substance: BUPRENORPHINE
     Indication: Product used for unknown indication
     Dosage: UNK
     Route: 065

REACTIONS (34)
  - Large intestine polyp [Unknown]
  - Osteonecrosis [Not Recovered/Not Resolved]
  - Suicidal ideation [Unknown]
  - Frequent bowel movements [Recovered/Resolved]
  - Mucous stools [Recovered/Resolved]
  - Abnormal faeces [Recovered/Resolved]
  - Asthenia [Not Recovered/Not Resolved]
  - Osteoarthritis [Not Recovered/Not Resolved]
  - Depressed mood [Not Recovered/Not Resolved]
  - Emotional distress [Recovering/Resolving]
  - Apathy [Recovering/Resolving]
  - Off label use [Unknown]
  - Abdominal pain [Not Recovered/Not Resolved]
  - Diarrhoea [Unknown]
  - Musculoskeletal chest pain [Not Recovered/Not Resolved]
  - Oedema peripheral [Recovered/Resolved]
  - Joint range of motion decreased [Recovered/Resolved]
  - Malaise [Unknown]
  - Food intolerance [Recovered/Resolved]
  - Depression [Unknown]
  - Anxiety [Unknown]
  - Binge eating [Unknown]
  - Weight increased [Unknown]
  - General physical health deterioration [Unknown]
  - Fall [Unknown]
  - Body height increased [Unknown]
  - Discouragement [Not Recovered/Not Resolved]
  - Somnolence [Unknown]
  - Vomiting [Unknown]
  - Nasal congestion [Recovered/Resolved]
  - Arthralgia [Not Recovered/Not Resolved]
  - Pain in extremity [Recovered/Resolved]
  - Cough [Recovered/Resolved]
  - Nausea [Unknown]

NARRATIVE: CASE EVENT DATE: 20200510
